FAERS Safety Report 15582371 (Version 4)
Quarter: 2018Q4

REPORT INFORMATION
  Report Type: Report from Study
  Country: NO (occurrence: NO)
  Receive Date: 20181102
  Receipt Date: 20181117
  Transmission Date: 20190205
  Serious: Yes (Death, Life-Threatening, Hospitalization)
  Sender: FDA-Public Use
  Company Number: NO-AMGEN-NORNI2018153675

PATIENT
  Age: 73 Year
  Weight: 57 kg

DRUGS (31)
  1. DEXAMETHASONE. [Suspect]
     Active Substance: DEXAMETHASONE
     Indication: PLASMA CELL MYELOMA
     Dosage: 20 MG, UNK
     Route: 065
     Dates: start: 20180910
  2. NEUPOGEN [Concomitant]
     Active Substance: FILGRASTIM
     Dosage: 0.3 MG, UNK
  3. PANODIL [Concomitant]
     Active Substance: ACETAMINOPHEN
     Dosage: 1 G, AS NEEDED AND 500 MG 1-2 TIMES ADAY
  4. IMODIUM [Concomitant]
     Active Substance: LOPERAMIDE HYDROCHLORIDE
     Dosage: UNK
  5. RINGER-ACETAT [Concomitant]
     Dosage: 1000 ML, UNK
  6. VANCOMYCIN ACTAVIS [Concomitant]
     Active Substance: VANCOMYCIN
     Indication: CLOSTRIDIUM DIFFICILE INFECTION
     Dosage: 125 MG, UNK
  7. SOMAC [Concomitant]
     Active Substance: PANTOPRAZOLE SODIUM
     Dosage: 40 MG, UNK
  8. IMDUR [Concomitant]
     Active Substance: ISOSORBIDE MONONITRATE
     Dosage: 30 UNK, UNK
  9. SIMVASTATIN SANDOZ [Concomitant]
     Active Substance: SIMVASTATIN
     Dosage: 40 MG, UNK
  10. DEXAMETHASON [Concomitant]
     Active Substance: DEXAMETHASONE
     Dosage: 4 MG, UNK
  11. METOPROLOL SANDOZ [Concomitant]
     Active Substance: METOPROLOL
     Dosage: 50 MG, UNK
  12. IMOVANE [Concomitant]
     Active Substance: ZOPICLONE
     Dosage: 7.5 MG, UNK
  13. STESOLID [Concomitant]
     Active Substance: DIAZEPAM
     Dosage: 2.5 MG, UNK
  14. AFIPRAN [Concomitant]
     Active Substance: METOCLOPRAMIDE HYDROCHLORIDE
     Dosage: 10 MG, UNK
  15. CALOGEN [Concomitant]
     Dosage: UNK
  16. PABRINEX [Concomitant]
     Active Substance: ASCORBIC ACID\VITAMIN B COMPLEX
     Dosage: UNK
  17. DIFLUCAN [Concomitant]
     Active Substance: FLUCONAZOLE
     Dosage: 100 MG, UNK
  18. FLUCONAZOL [Concomitant]
     Active Substance: FLUCONAZOLE
     Dosage: 100 MG, UNK
     Dates: start: 20181004, end: 20181018
  19. ALLOPURINOL. [Concomitant]
     Active Substance: ALLOPURINOL
     Dosage: 300 MG, UNK
  20. NACL [Concomitant]
     Active Substance: SODIUM CHLORIDE
     Dosage: 1000 ML, UNK
  21. CARFILZOMIB [Suspect]
     Active Substance: CARFILZOMIB
     Indication: PLASMA CELL MYELOMA
     Dosage: 20 MG/M2, UNK
     Route: 042
     Dates: start: 20180910, end: 20180918
  22. SOLU-CORTEF [Concomitant]
     Active Substance: HYDROCORTISONE SODIUM SUCCINATE
     Dosage: 250 MG, UNK
  23. ACICLOVIR [Concomitant]
     Active Substance: ACYCLOVIR
     Indication: CLOSTRIDIUM DIFFICILE INFECTION
     Dosage: 250 MG, UNK
     Route: 042
  24. ECALTA [Suspect]
     Active Substance: ANIDULAFUNGIN
     Indication: PRODUCT USED FOR UNKNOWN INDICATION
     Dosage: 200 MG, UNK
     Route: 042
     Dates: start: 20181018
  25. LENALIDOMIDE [Concomitant]
     Active Substance: LENALIDOMIDE
     Indication: PLASMA CELL MYELOMA
     Dosage: UNK
  26. NEXIUM [Concomitant]
     Active Substance: ESOMEPRAZOLE MAGNESIUM
     Dosage: 40 MG, UNK
     Dates: start: 20181002, end: 20181018
  27. VALTREX [Concomitant]
     Active Substance: VALACYCLOVIR HYDROCHLORIDE
     Dosage: 250 MG, UNK
  28. FLAGYL [Concomitant]
     Active Substance: METRONIDAZOLE\METRONIDAZOLE HYDROCHLORIDE
     Dosage: 400 MG, UNK
     Dates: start: 20181014, end: 20181018
  29. DEKSKLORFENIRAMIN [Concomitant]
     Dosage: 5 MG, UNK
  30. ALBYL-E [Concomitant]
     Active Substance: ASPIRIN\MAGNESIUM OXIDE
     Dosage: 75 MG, UNK
  31. MEROPENEM. [Concomitant]
     Active Substance: MEROPENEM
     Indication: CLOSTRIDIUM DIFFICILE INFECTION
     Dosage: 1 G, UNK
     Route: 042
     Dates: start: 20181017, end: 20181025

REACTIONS (3)
  - Hepatic failure [Fatal]
  - Escherichia sepsis [Recovered/Resolved]
  - Clostridium difficile infection [Recovered/Resolved]

NARRATIVE: CASE EVENT DATE: 20181014
